FAERS Safety Report 6862246-2 (Version None)
Quarter: 2010Q2

REPORT INFORMATION
  Report Type: 
  Country: None (occurrence: None)
  Receive Date: 20100513
  Receipt Date: 20100220
  Transmission Date: 20101027
  Serious: Yes (Hospitalization, Other)
  Sender: FDA-Public Use
  Company Number: AUR-APL-2010-00594

PATIENT
  Age: 66 Year
  Sex: Female
  Weight: 88 kg

DRUGS (2)
  1. LISINOPRIL AND HYDROCHLOROTHIAZIDE [Suspect]
     Indication: HYPERTENSION
     Dosage: 20/12.5MG-QD-ORAL
     Route: 048
     Dates: start: 20090406, end: 20090409
  2. CELECOXIB; IBUPROFEN/NAPROXEN; PLACEBO [Suspect]
     Indication: ARTHRITIS
     Dosage: DAILY-ORAL
     Route: 048
     Dates: start: 20070623

REACTIONS (1)
  - ANGIOEDEMA [None]
